FAERS Safety Report 13665246 (Version 1)
Quarter: 2017Q2

REPORT INFORMATION
  Report Type: Spontaneous
  Country: US (occurrence: US)
  Receive Date: 20170619
  Receipt Date: 20170619
  Transmission Date: 20170830
  Serious: Yes (Other)
  Sender: FDA-Public Use
  Company Number: None

PATIENT
  Age: 33 Year
  Sex: Female
  Weight: 75.15 kg

DRUGS (1)
  1. DEPO-PROVERA [Suspect]
     Active Substance: MEDROXYPROGESTERONE ACETATE
     Indication: CONTRACEPTION
     Dosage: OTHER FREQUENCY:EVERY 12 WEEKS;?
     Route: 030
     Dates: start: 20120517, end: 20170413

REACTIONS (2)
  - Pregnancy with injectable contraceptive [None]
  - Exposure during pregnancy [None]

NARRATIVE: CASE EVENT DATE: 20170413
